FAERS Safety Report 23508429 (Version 1)
Quarter: 2024Q1

REPORT INFORMATION
  Report Type: Report from Study
  Country: US (occurrence: None)
  Receive Date: 20240209
  Receipt Date: 20240209
  Transmission Date: 20240410
  Serious: Yes (Other)
  Sender: FDA-Public Use
  Company Number: 2024A031997

PATIENT
  Sex: Female

DRUGS (12)
  1. TAGRISSO [Suspect]
     Active Substance: OSIMERTINIB
     Indication: Lung carcinoma cell type unspecified stage 0
     Route: 048
  2. TRAZODONE [Concomitant]
     Active Substance: TRAZODONE HYDROCHLORIDE
     Dosage: 300.0MG UNKNOWN
  3. ANTI DIARRHE [Concomitant]
     Dosage: 2.0MG UNKNOWN
  4. CENTRUM ADUL [Concomitant]
  5. MAGNESIUM OX [Concomitant]
     Dosage: 250.0MG UNKNOWN
  6. DICLOFENAC [Concomitant]
     Active Substance: DICLOFENAC
  7. MELATONIN [Concomitant]
     Active Substance: MELATONIN
  8. MIRALAX [Concomitant]
     Active Substance: POLYETHYLENE GLYCOL 3350
     Dosage: 17 GM/SCOOP
  9. TRAMADOL [Concomitant]
     Active Substance: TRAMADOL\TRAMADOL HYDROCHLORIDE
     Dosage: 50.0MG UNKNOWN
  10. TYLENOL [Concomitant]
     Active Substance: ACETAMINOPHEN
     Dosage: 325.0MG UNKNOWN
  11. VITAMIN D [Concomitant]
     Active Substance: VITAMIN D NOS
     Dosage: 25.0MG UNKNOWN
  12. METFORMIN [Concomitant]
     Active Substance: METFORMIN HYDROCHLORIDE
     Dosage: 500.0MG UNKNOWN

REACTIONS (2)
  - Gastric neoplasm [Not Recovered/Not Resolved]
  - Insomnia [Not Recovered/Not Resolved]
